FAERS Safety Report 14629822 (Version 1)
Quarter: 2018Q1

REPORT INFORMATION
  Report Type: Spontaneous
  Country: DK (occurrence: DK)
  Receive Date: 20180313
  Receipt Date: 20180313
  Transmission Date: 20180509
  Serious: Yes (Hospitalization)
  Sender: FDA-Public Use
  Company Number: DK-AMGEN-DNKSP2018033124

PATIENT
  Age: 68 Year
  Sex: Female

DRUGS (2)
  1. KYPROLIS [Suspect]
     Active Substance: CARFILZOMIB
     Indication: PLASMA CELL MYELOMA
     Dosage: DOSE: 56 MG/M2 ADMINISTERED ON DAY 1,2,8,9,15,16.
     Route: 042
     Dates: start: 20170612, end: 20180103
  2. DEXAMETASON ABCUR [Concomitant]
     Indication: PLASMA CELL MYELOMA
     Dosage: 5 TABLETS WHEN NEEDED MAX 1 TIME PER DAY ADMINISTERED ON DAY 1,2,8,9,15,16,22,23,STRENGTH: 4 MG
     Route: 048
     Dates: start: 20170612, end: 20180103

REACTIONS (3)
  - Abdominal pain [Unknown]
  - Colitis ischaemic [Recovered/Resolved]
  - Diarrhoea haemorrhagic [Unknown]

NARRATIVE: CASE EVENT DATE: 20180105
